FAERS Safety Report 8427594-3 (Version None)
Quarter: 2012Q2

REPORT INFORMATION
  Report Type: 
  Country: None (occurrence: None)
  Receive Date: 20120611
  Receipt Date: 20120530
  Transmission Date: 20120825
  Serious: Yes (Hospitalization)
  Sender: FDA-Public Use
  Company Number: US-ELI_LILLY_AND_COMPANY-US201004007743

PATIENT
  Sex: Female

DRUGS (2)
  1. FORTEO [Suspect]
     Dosage: 20 UG, DAILY (1/D)
  2. FORTEO [Suspect]
     Indication: OSTEOPOROSIS
     Dosage: 20 UG, DAILY (1/D)
     Dates: start: 20100408

REACTIONS (8)
  - CONTUSION [None]
  - INJECTION SITE HAEMATOMA [None]
  - ARTHRALGIA [None]
  - NAIL GROWTH ABNORMAL [None]
  - FATIGUE [None]
  - BONE FRAGMENTATION [None]
  - JOINT INJURY [None]
  - MUSCLE SPASMS [None]
